FAERS Safety Report 5491088-8 (Version None)
Quarter: 2007Q4

REPORT INFORMATION
  Report Type: 
  Country: None (occurrence: None)
  Receive Date: 20071019
  Receipt Date: 20071008
  Transmission Date: 20080405
  Serious: Yes (Life-Threatening, Hospitalization)
  Sender: FDA-Public Use
  Company Number: CH-PFIZER INC-2007049025

PATIENT
  Sex: Male
  Weight: 85 kg

DRUGS (11)
  1. SU-011,248 [Suspect]
     Indication: RENAL CELL CARCINOMA STAGE UNSPECIFIED
     Route: 048
     Dates: start: 20070323, end: 20070613
  2. LESCOL [Suspect]
     Route: 048
  3. ZOVIRAX [Concomitant]
     Route: 042
     Dates: start: 20070613, end: 20070614
  4. KONAKION [Concomitant]
     Route: 042
     Dates: start: 20070614, end: 20070614
  5. TORSEMIDE [Concomitant]
     Route: 048
  6. ASPIRIN [Concomitant]
     Route: 048
  7. BENERVA [Concomitant]
     Route: 048
  8. BECOZYME [Concomitant]
     Route: 048
  9. ENATEC [Concomitant]
     Route: 048
  10. INDOCIN [Concomitant]
     Route: 048
     Dates: start: 20070611, end: 20070613
  11. METOPROLOL SUCCINATE [Concomitant]
     Route: 048

REACTIONS (3)
  - CARDIAC FAILURE [None]
  - CYTOLYTIC HEPATITIS [None]
  - RHABDOMYOLYSIS [None]
